FAERS Safety Report 10855189 (Version 1)
Quarter: 2015Q1

REPORT INFORMATION
  Report Type: Report from Study
  Country: BE (occurrence: None)
  Receive Date: 20150218
  Receipt Date: 20150218
  Transmission Date: 20150721
  Serious: Yes (Death)
  Sender: FDA-Public Use
  Company Number: 2015SA014308

PATIENT

DRUGS (3)
  1. CLOFARABINE (CLOFARABINE) (CLOFARABINE) [Suspect]
     Active Substance: CLOFARABINE
     Indication: CHEMOTHERAPY
     Route: 042
  2. IDARUBICIN (IDARUBICIN) (IDARUBICIN) [Suspect]
     Active Substance: IDARUBICIN
     Indication: CHEMOTHERAPY
  3. CYTOSINE ARABINOSIDE [Suspect]
     Active Substance: CYTARABINE
     Indication: CHEMOTHERAPY

REACTIONS (2)
  - Toxicity to various agents [None]
  - Drug effect incomplete [None]
